FAERS Safety Report 19099987 (Version 4)
Quarter: 2021Q2

REPORT INFORMATION
  Report Type: Report from Study
  Country: US (occurrence: US)
  Receive Date: 20210407
  Receipt Date: 20210518
  Transmission Date: 20210717
  Serious: Yes (Hospitalization, Other)
  Sender: FDA-Public Use
  Company Number: US-AMRYT PHARMACEUTICALS DAC-AEGR005112

PATIENT
  Age: 21 Year
  Sex: Female
  Weight: 61.22 kg

DRUGS (17)
  1. STERILE WATER [Concomitant]
     Active Substance: WATER
     Indication: PRODUCT USED FOR UNKNOWN INDICATION
  2. JARDIANCE [Concomitant]
     Active Substance: EMPAGLIFLOZIN
     Dosage: 25 MILLIGRAM, QD
     Route: 048
     Dates: start: 20210324
  3. TRETINOIN. [Concomitant]
     Active Substance: TRETINOIN
     Indication: PRODUCT USED FOR UNKNOWN INDICATION
  4. METRELEPTIN [Suspect]
     Active Substance: METRELEPTIN
     Indication: LIPODYSTROPHY ACQUIRED
     Dosage: 5.0 MILLIGRAM, QD
     Route: 058
     Dates: start: 20201008
  5. PROAIR HFA [Concomitant]
     Active Substance: ALBUTEROL SULFATE
     Indication: PRODUCT USED FOR UNKNOWN INDICATION
  6. NAPROXEN. [Concomitant]
     Active Substance: NAPROXEN
     Indication: ARTHRALGIA
     Dosage: 500 MILLIGRAM, BID
     Route: 048
     Dates: start: 20190612
  7. METFORMIN HCL [Concomitant]
     Active Substance: METFORMIN HYDROCHLORIDE
     Indication: DIABETES MELLITUS
     Dosage: 1000 MILLIGRAM, BID
     Route: 048
     Dates: start: 20130520
  8. KETOCONAZOLE. [Concomitant]
     Active Substance: KETOCONAZOLE
     Indication: SEBORRHOEIC DERMATITIS
     Dosage: 1 APPLICATION 3 X WEEKLY
     Route: 061
     Dates: start: 20201012
  9. LOVAZA [Concomitant]
     Active Substance: OMEGA-3-ACID ETHYL ESTERS
     Indication: HYPERTRIGLYCERIDAEMIA
     Dosage: 2 GRAM, BID
     Route: 048
     Dates: start: 2012
  10. BACTERIOSTATIC WATER [Concomitant]
     Active Substance: WATER
     Indication: PRODUCT USED FOR UNKNOWN INDICATION
  11. ACTOS [Concomitant]
     Active Substance: PIOGLITAZONE HYDROCHLORIDE
     Indication: PRODUCT USED FOR UNKNOWN INDICATION
  12. HUMULIN R [Concomitant]
     Active Substance: INSULIN HUMAN
     Indication: DIABETES MELLITUS
     Dosage: 100 INTERNATIONAL UNIT, CONTINOUS VIA PUMP
     Route: 058
     Dates: start: 2019
  13. ERGOCALCIFEROL. [Concomitant]
     Active Substance: ERGOCALCIFEROL
     Indication: VITAMIN D DECREASED
     Dosage: 50000 INTERNATIONAL UNIT, WEEKLY
     Route: 048
  14. JARDIANCE [Concomitant]
     Active Substance: EMPAGLIFLOZIN
     Indication: DIABETES MELLITUS
     Dosage: 10 MILLIGRAM, QD
     Route: 048
     Dates: start: 20201221, end: 20210323
  15. FENOFIBRATE. [Concomitant]
     Active Substance: FENOFIBRATE
     Indication: HYPERTRIGLYCERIDAEMIA
     Dosage: 160 MILLIGRAM, QD
     Route: 048
     Dates: start: 20141018
  16. LAMICTAL [Concomitant]
     Active Substance: LAMOTRIGINE
     Indication: DEPRESSION
     Dosage: 25 MILLIGRAM, BID
     Route: 048
     Dates: start: 20190620
  17. LISINOPRIL. [Concomitant]
     Active Substance: LISINOPRIL
     Indication: HYPERTENSION
     Dosage: 30 MILLIGRAM, QD
     Route: 048

REACTIONS (7)
  - Psychogenic seizure [Not Recovered/Not Resolved]
  - Injection site pruritus [Recovered/Resolved]
  - Back pain [Not Recovered/Not Resolved]
  - Seizure [Unknown]
  - Blood glucose increased [Unknown]
  - Injection site irritation [Unknown]
  - Injection site reaction [Unknown]

NARRATIVE: CASE EVENT DATE: 202012
